FAERS Safety Report 24909592 (Version 1)
Quarter: 2025Q1

REPORT INFORMATION
  Report Type: Spontaneous
  Country: US (occurrence: None)
  Receive Date: 20250130
  Receipt Date: 20250130
  Transmission Date: 20250409
  Serious: Yes (Hospitalization, Other)
  Sender: FDA-CTU
  Company Number: None

PATIENT
  Age: 57 Year
  Sex: Female

DRUGS (1)
  1. OZEMPIC [Suspect]
     Active Substance: SEMAGLUTIDE
     Indication: Glycosylated haemoglobin increased
     Dosage: FREQUENCY : WEEKLY;?
     Route: 058
     Dates: start: 20210130, end: 20241115

REACTIONS (9)
  - Weight decreased [None]
  - Abdominal pain upper [None]
  - Vomiting projectile [None]
  - Diarrhoea [None]
  - Chest pain [None]
  - Influenza [None]
  - Gastroenteritis viral [None]
  - Impaired gastric emptying [None]
  - Therapy cessation [None]
